FAERS Safety Report 25882575 (Version 2)
Quarter: 2025Q4

REPORT INFORMATION
  Report Type: Spontaneous
  Country: US (occurrence: US)
  Receive Date: 20251006
  Receipt Date: 20251012
  Transmission Date: 20260118
  Serious: No
  Sender: SANOFI AVENTIS
  Company Number: US-SA-2025SA295171

PATIENT
  Sex: Female

DRUGS (1)
  1. DUPIXENT [Suspect]
     Active Substance: DUPILUMAB
     Indication: Dermatitis atopic
     Dosage: 300 MG, QOW
     Route: 058
     Dates: start: 202308, end: 2025

REACTIONS (5)
  - Eye pain [Unknown]
  - Skin swelling [Unknown]
  - Pain in extremity [Unknown]
  - Vision blurred [Unknown]
  - Erythema [Unknown]
